FAERS Safety Report 9400190 (Version 1)
Quarter: 2013Q3

REPORT INFORMATION
  Report Type: Spontaneous
  Country: US (occurrence: US)
  Receive Date: 20130715
  Receipt Date: 20130715
  Transmission Date: 20140515
  Serious: Yes (Hospitalization)
  Sender: FDA-Public Use
  Company Number: US-BAYER-2013-085377

PATIENT
  Age: 37 Year
  Sex: Female

DRUGS (7)
  1. YAZ [Suspect]
  2. YASMIN [Suspect]
  3. PROZAC [Concomitant]
     Dosage: UNK
     Dates: start: 20060817
  4. FLEXERIL [Concomitant]
     Dosage: UNK
     Dates: start: 20060817
  5. BENADRYL [Concomitant]
     Dosage: UNK
     Dates: start: 20060817
  6. FLUOXETINE HCL [Concomitant]
  7. COUMADIN [Concomitant]
     Indication: PULMONARY EMBOLISM

REACTIONS (1)
  - Pulmonary embolism [None]
